FAERS Safety Report 9927309 (Version 4)
Quarter: 2014Q4

REPORT INFORMATION
  Report Type: Report from Study
  Country: BR (occurrence: BR)
  Receive Date: 20140226
  Receipt Date: 20141028
  Transmission Date: 20150529
  Serious: Yes (Hospitalization, Other)
  Sender: FDA-Public Use
  Company Number: PHHY2013BR076558

PATIENT
  Age: 77 Year
  Sex: Male
  Weight: 63 kg

DRUGS (15)
  1. EXJADE [Suspect]
     Active Substance: DEFERASIROX
     Dosage: 1 DF OF 250 MG AND 2 DF OF 500MG, DAILY
     Route: 065
  2. VASOGARD [Concomitant]
     Active Substance: CILOSTAZOL
     Indication: HYPERTENSION
     Dosage: 1 DF, DAILY
     Route: 065
  3. ARADOIS [Concomitant]
     Active Substance: LOSARTAN POTASSIUM
     Indication: HYPERTENSION
     Dosage: 1 DF, UNK
     Route: 065
  4. EXJADE [Suspect]
     Active Substance: DEFERASIROX
     Dosage: 4 DF (500 MG), DAILY
     Route: 065
  5. EXJADE [Suspect]
     Active Substance: DEFERASIROX
     Dosage: 3DF (500 MG), DAILY
     Route: 065
  6. OMEPRAZOLE. [Concomitant]
     Active Substance: OMEPRAZOLE
     Dosage: UNK
     Route: 065
  7. EXJADE [Suspect]
     Active Substance: DEFERASIROX
     Dosage: 1 DF (25 MG), UNK
     Route: 065
  8. EXJADE [Suspect]
     Active Substance: DEFERASIROX
     Dosage: 4 DF, (50 MG) DAILY
     Route: 048
  9. EXJADE [Suspect]
     Active Substance: DEFERASIROX
     Dosage: 1 DF OF 500 MG AND 1 DF OF 250MG, DAILY
     Route: 065
  10. VIDAZA [Suspect]
     Active Substance: AZACITIDINE
     Indication: ANAEMIA
     Dosage: UNK UKN, 8 DAYS EVERY MONTH
     Route: 042
  11. HYDERGINE [Concomitant]
     Active Substance: ERGOLOID MESYLATES
     Dosage: UNK
     Route: 065
  12. EXJADE [Suspect]
     Active Substance: DEFERASIROX
     Indication: MYELODYSPLASTIC SYNDROME
     Dosage: 3 DF, UNK
     Route: 065
     Dates: start: 2012
  13. EXJADE [Suspect]
     Active Substance: DEFERASIROX
     Dosage: 4 DF (50 MG), UNK
     Route: 065
  14. INFLUENZA VIRUS VACC SEASONAL INN [Suspect]
     Active Substance: INFLUENZA VIRUS VACCINE
     Indication: IMMUNISATION
     Route: 065
  15. VIDAZA [Suspect]
     Active Substance: AZACITIDINE
     Indication: MYELODYSPLASTIC SYNDROME

REACTIONS (16)
  - Incorrect route of drug administration [Unknown]
  - Orbital oedema [Recovered/Resolved]
  - Confusional state [Not Recovered/Not Resolved]
  - Respiratory failure [Not Recovered/Not Resolved]
  - Asthenia [Not Recovered/Not Resolved]
  - Erythema [Not Recovered/Not Resolved]
  - Serum ferritin increased [Not Recovered/Not Resolved]
  - Anaemia [Unknown]
  - Malaise [Not Recovered/Not Resolved]
  - Hypersensitivity [Recovering/Resolving]
  - Pruritus [Not Recovered/Not Resolved]
  - Pain in extremity [Recovering/Resolving]
  - Head discomfort [Not Recovered/Not Resolved]
  - Loss of consciousness [Not Recovered/Not Resolved]
  - Fatigue [Not Recovered/Not Resolved]
  - Peripheral swelling [Recovered/Resolved]

NARRATIVE: CASE EVENT DATE: 20140514
